FAERS Safety Report 14166404 (Version 3)
Quarter: 2018Q1

REPORT INFORMATION
  Report Type: Spontaneous
  Country: JP (occurrence: JP)
  Receive Date: 20171107
  Receipt Date: 20180305
  Transmission Date: 20180508
  Serious: Yes (Hospitalization, Other)
  Sender: FDA-Public Use
  Company Number: JP-PFIZER INC-2017477719

PATIENT
  Age: 85 Year
  Sex: Male
  Weight: 51 kg

DRUGS (13)
  1. NEUTROGIN [Concomitant]
     Active Substance: LENOGRASTIM
     Indication: SURGERY
     Dosage: 3.6 IU, 1X/DAY
     Route: 041
     Dates: start: 20170930, end: 20171001
  2. CELECOX [Suspect]
     Active Substance: CELECOXIB
     Indication: FRACTURE PAIN
     Dosage: 200 MG, 2X/DAY
     Route: 048
     Dates: start: 20170919, end: 20170924
  3. ATARAX [Concomitant]
     Active Substance: HYDROXYZINE HYDROCHLORIDE
     Indication: SURGERY
     Dosage: 25 MG, 1X/DAY
     Route: 030
     Dates: start: 20170929, end: 20170929
  4. URIEF [Concomitant]
     Active Substance: SILODOSIN
     Indication: BENIGN PROSTATIC HYPERPLASIA
     Dosage: 4 MG, 2X/DAY
     Route: 048
  5. AZUCURENIN S [Concomitant]
     Active Substance: GLUTAMINE
     Indication: BENIGN PROSTATIC HYPERPLASIA
     Dosage: 0.5 G, 2X/DAY
     Route: 048
  6. LACTATED RINGERS SOLUTION [Concomitant]
     Active Substance: CALCIUM CHLORIDE\POTASSIUM CHLORIDE\SODIUM CHLORIDE\SODIUM LACTATE
     Dosage: 500 ML, 1X/DAY
     Route: 041
     Dates: start: 20170930, end: 20171001
  7. CELECOX [Suspect]
     Active Substance: CELECOXIB
     Dosage: 100 MG, 2X/DAY
     Route: 048
     Dates: start: 20170925, end: 20171003
  8. BLOPRESS [Concomitant]
     Active Substance: CANDESARTAN CILEXETIL
     Indication: HYPERTENSION
     Dosage: 2 MG, 1X/DAY
     Route: 048
  9. BESACOLIN [Concomitant]
     Active Substance: BETHANECHOL CHLORIDE
     Indication: BENIGN PROSTATIC HYPERPLASIA
     Dosage: 0.3 G, TWICE DAILY
     Route: 048
  10. PANSPORIN [Concomitant]
     Active Substance: CEFOTIAM HYDROCHLORIDE
     Indication: SURGERY
     Dosage: 1 G, 2X/DAY
     Route: 041
     Dates: start: 20170929, end: 20171001
  11. REBAMIPIDE [Concomitant]
     Active Substance: REBAMIPIDE
     Indication: PROPHYLAXIS
     Dosage: 100 MG, 2X/DAY
     Route: 048
     Dates: start: 20170919, end: 20170924
  12. AVOLVE [Concomitant]
     Active Substance: DUTASTERIDE
     Dosage: 0.5 MG, 1X/DAY
     Route: 048
  13. LACTATED RINGERS SOLUTION [Concomitant]
     Active Substance: CALCIUM CHLORIDE\POTASSIUM CHLORIDE\SODIUM CHLORIDE\SODIUM LACTATE
     Indication: SURGERY
     Dosage: 500 ML, 4X/DAY
     Route: 041
     Dates: start: 20170929, end: 20170929

REACTIONS (5)
  - Hypersensitivity [Recovering/Resolving]
  - Drug eruption [Recovering/Resolving]
  - Pruritus [Recovering/Resolving]
  - Rash [Recovering/Resolving]
  - Erythema [Recovering/Resolving]

NARRATIVE: CASE EVENT DATE: 20171002
